FAERS Safety Report 15021369 (Version 1)
Quarter: 2018Q2

REPORT INFORMATION
  Report Type: Spontaneous
  Country: US (occurrence: US)
  Receive Date: 20180601
  Receipt Date: 20180601
  Transmission Date: 20180711
  Serious: Yes (Life-Threatening, Hospitalization)
  Sender: FDA-Public Use
  Company Number: None

PATIENT
  Age: 36 Year
  Sex: Female
  Weight: 78.3 kg

DRUGS (1)
  1. CHANTIX [Suspect]
     Active Substance: VARENICLINE TARTRATE
     Dates: start: 20180511, end: 20180524

REACTIONS (7)
  - Rash generalised [None]
  - Stevens-Johnson syndrome [None]
  - Pain [None]
  - Toxic epidermal necrolysis [None]
  - Chest discomfort [None]
  - Dyspnoea [None]
  - Skin exfoliation [None]

NARRATIVE: CASE EVENT DATE: 20180530
